FAERS Safety Report 5352326-5 (Version None)
Quarter: 2007Q2

REPORT INFORMATION
  Report Type: 
  Country: None (occurrence: None)
  Receive Date: 20070607
  Receipt Date: 20070607
  Transmission Date: 20071010
  Serious: Yes (Hospitalization, Other)
  Sender: FDA-Public Use
  Company Number: None

PATIENT
  Age: 34 Year
  Sex: Male
  Weight: 95.2554 kg

DRUGS (1)
  1. AVELOX [Suspect]
     Indication: SINUSITIS
     Dosage: 1 PILL ONCE A DAY PO
     Route: 048

REACTIONS (10)
  - ANXIETY [None]
  - CHEST PAIN [None]
  - DIARRHOEA [None]
  - EYE HAEMORRHAGE [None]
  - HEART RATE INCREASED [None]
  - HYPERHIDROSIS [None]
  - HYPOAESTHESIA [None]
  - NAUSEA [None]
  - OCULAR HYPERAEMIA [None]
  - SKIN BURNING SENSATION [None]
